FAERS Safety Report 6810052-7 (Version None)
Quarter: 2010Q2

REPORT INFORMATION
  Report Type: 
  Country: None (occurrence: None)
  Receive Date: 20100630
  Receipt Date: 20100622
  Transmission Date: 20101027
  Serious: Yes (Hospitalization)
  Sender: FDA-Public Use
  Company Number: CH-ROCHE-711041

PATIENT
  Age: 74 Year
  Sex: Female

DRUGS (2)
  1. AVASTIN [Suspect]
     Dosage: CYCLES
     Route: 041
     Dates: start: 20100101, end: 20100501
  2. CAELYX [Suspect]
     Dosage: CYCLES
     Route: 041
     Dates: start: 20100101, end: 20100501

REACTIONS (3)
  - CARDIAC FAILURE [None]
  - CARDIOMYOPATHY [None]
  - DYSPNOEA [None]
